FAERS Safety Report 5253449-1 (Version None)
Quarter: 2007Q1

REPORT INFORMATION
  Report Type: 
  Country: None (occurrence: None)
  Receive Date: 20070301
  Receipt Date: 20070216
  Transmission Date: 20070707
  Serious: Yes (Hospitalization)
  Sender: FDA-Public Use
  Company Number: US-SHR-US-2007-005915

PATIENT
  Age: 51 Year
  Sex: Female

DRUGS (9)
  1. BETASERON [Suspect]
     Indication: RELAPSING-REMITTING MULTIPLE SCLEROSIS
     Dosage: UNK, UNK
     Route: 058
     Dates: start: 19990602, end: 20030701
  2. BETASERON [Suspect]
     Route: 058
     Dates: start: 20030814, end: 20031114
  3. BETASERON [Suspect]
     Dosage: 8 MIU, EVERY 2D
     Route: 058
     Dates: start: 20041229
  4. TRICOR [Concomitant]
  5. TEMAZEPAM [Concomitant]
  6. LISINOPRIL [Concomitant]
  7. CLONIDINE [Concomitant]
  8. VYTORIN [Concomitant]
  9. THYROID PREPARATIONS [Concomitant]

REACTIONS (8)
  - CHEST DISCOMFORT [None]
  - CHEST PAIN [None]
  - COLD SWEAT [None]
  - FEELING COLD [None]
  - HYPOTENSION [None]
  - PAIN [None]
  - PULSE ABNORMAL [None]
  - PYREXIA [None]
